FAERS Safety Report 22724527 (Version 9)
Quarter: 2023Q4

REPORT INFORMATION
  Report Type: Report from Study
  Country: DE (occurrence: DE)
  Receive Date: 20230719
  Receipt Date: 20231004
  Transmission Date: 20240110
  Serious: Yes (Hospitalization, Other)
  Sender: FDA-Public Use
  Company Number: DE-TAKEDA-2023TUS056184

PATIENT
  Age: 38 Year
  Sex: Male

DRUGS (5)
  1. VONICOG ALFA [Suspect]
     Active Substance: VONICOG ALFA
     Indication: Von Willebrand^s disease
     Dosage: 3900 INTERNATIONAL UNIT, Q2WEEKS
     Route: 042
     Dates: start: 20230605
  2. VONICOG ALFA [Suspect]
     Active Substance: VONICOG ALFA
     Indication: Prophylaxis
     Dosage: 2900 INTERNATIONAL UNIT, 2/WEEK
     Route: 042
  3. VONICOG ALFA [Suspect]
     Active Substance: VONICOG ALFA
     Dosage: 2600 INTERNATIONAL UNIT, 2/WEEK
     Route: 042
  4. VONICOG ALFA [Suspect]
     Active Substance: VONICOG ALFA
     Dosage: 3900 INTERNATIONAL UNIT, 3/WEEK
     Route: 042
  5. VONICOG ALFA [Suspect]
     Active Substance: VONICOG ALFA
     Dosage: 3900 INTERNATIONAL UNIT, 3/WEEK
     Route: 042

REACTIONS (11)
  - Gastrointestinal neoplasm [Recovering/Resolving]
  - Gastrointestinal disorder [Recovering/Resolving]
  - Fatigue [Not Recovered/Not Resolved]
  - White blood cell count increased [Recovered/Resolved]
  - Rectal haemorrhage [Recovering/Resolving]
  - Haemorrhage [Recovering/Resolving]
  - Metastases to lymph nodes [Recovering/Resolving]
  - Cardiovascular disorder [Recovering/Resolving]
  - Haemoglobin decreased [Not Recovered/Not Resolved]
  - Platelet count decreased [Not Recovered/Not Resolved]
  - Dizziness [Recovering/Resolving]

NARRATIVE: CASE EVENT DATE: 20230712
